FAERS Safety Report 20474756 (Version 1)
Quarter: 2022Q1

REPORT INFORMATION
  Report Type: Spontaneous
  Country: US (occurrence: None)
  Receive Date: 20220214
  Receipt Date: 20220214
  Transmission Date: 20220423
  Serious: Yes (Other)
  Sender: FDA-Public Use
  Company Number: None

PATIENT
  Age: 54 Year
  Sex: Female
  Weight: 67.5 kg

DRUGS (3)
  1. MULTIHANCE [Suspect]
     Active Substance: GADOBENATE DIMEGLUMINE
     Indication: Scan with contrast
     Dates: start: 20211124, end: 20211124
  2. LEVOTHYROXINE [Concomitant]
     Active Substance: LEVOTHYROXINE
  3. VITAMINS [Concomitant]
     Active Substance: VITAMINS

REACTIONS (7)
  - Hypersensitivity [None]
  - Contrast media allergy [None]
  - Urticaria [None]
  - Muscle spasms [None]
  - Erythema [None]
  - Nausea [None]
  - Incontinence [None]

NARRATIVE: CASE EVENT DATE: 20211124
